FAERS Safety Report 15977528 (Version 1)
Quarter: 2019Q1

REPORT INFORMATION
  Report Type: Spontaneous
  Country: FR (occurrence: FR)
  Receive Date: 20190218
  Receipt Date: 20190218
  Transmission Date: 20190418
  Serious: Yes (Hospitalization)
  Sender: FDA-Public Use
  Company Number: FR-ELI_LILLY_AND_COMPANY-FR201902003050

PATIENT
  Age: 63 Year
  Sex: Female

DRUGS (1)
  1. ZYPADHERA [Suspect]
     Active Substance: OLANZAPINE PAMOATE
     Indication: SCHIZOPHRENIA
     Dosage: 300 MG, UNKNOWN
     Route: 030
     Dates: start: 20170613

REACTIONS (7)
  - Tachycardia [Not Recovered/Not Resolved]
  - Ataxia [Not Recovered/Not Resolved]
  - Somnolence [Not Recovered/Not Resolved]
  - Agitation [Not Recovered/Not Resolved]
  - Injection related reaction [Not Recovered/Not Resolved]
  - Hypertension [Not Recovered/Not Resolved]
  - Dysarthria [Not Recovered/Not Resolved]

NARRATIVE: CASE EVENT DATE: 20190124
